FAERS Safety Report 6315528-7 (Version None)
Quarter: 2009Q3

REPORT INFORMATION
  Report Type: 
  Country: None (occurrence: None)
  Receive Date: 20090819
  Receipt Date: 20090810
  Transmission Date: 20100115
  Serious: Yes (Disabling, Other)
  Sender: FDA-Public Use
  Company Number: BR-PFIZER INC-2009252650

PATIENT
  Age: 49 Year

DRUGS (1)
  1. CELEBRA [Suspect]
     Dosage: UNK MG, UNK
     Route: 048

REACTIONS (3)
  - ABASIA [None]
  - DEFORMITY [None]
  - INFARCTION [None]
